FAERS Safety Report 12606941 (Version 1)
Quarter: 2016Q3

REPORT INFORMATION
  Report Type: Spontaneous
  Country: US (occurrence: US)
  Receive Date: 20160729
  Receipt Date: 20160729
  Transmission Date: 20161109
  Serious: Yes (Other)
  Sender: FDA-Public Use
  Company Number: US-IGSA-GTI003855

PATIENT
  Age: 67 Year
  Sex: Male

DRUGS (5)
  1. IGIV (MANUFACTURER UNKNOWN) [Suspect]
     Active Substance: HUMAN IMMUNOGLOBULIN G
     Indication: IMMUNE THROMBOCYTOPENIC PURPURA
  2. METOPROLOL. [Concomitant]
     Active Substance: METOPROLOL
  3. LISINOPRIL. [Concomitant]
     Active Substance: LISINOPRIL
  4. DANAZOL. [Concomitant]
     Active Substance: DANAZOL
     Route: 048
  5. AMLODIPINE [Concomitant]
     Active Substance: AMLODIPINE BESYLATE

REACTIONS (7)
  - Blood creatinine increased [Recovered/Resolved]
  - Acute myocardial infarction [Recovered/Resolved]
  - Bundle branch block right [Recovered/Resolved]
  - Troponin increased [Recovered/Resolved]
  - Left ventricular hypertrophy [Recovered/Resolved]
  - Hypertension [Recovered/Resolved]
  - Electrocardiogram ST segment depression [Recovered/Resolved]
